FAERS Safety Report 9437215 (Version 1)
Quarter: 2013Q3

REPORT INFORMATION
  Report Type: Report from Study
  Country: BR (occurrence: BR)
  Receive Date: 20130802
  Receipt Date: 20130802
  Transmission Date: 20140515
  Serious: Yes (Other)
  Sender: FDA-Public Use
  Company Number: PHHY2013BR081100

PATIENT
  Sex: Female
  Weight: 70 kg

DRUGS (6)
  1. SANDOSTATIN LAR [Suspect]
     Indication: ACROMEGALY
     Dosage: UNK UKN, EVERY 28 DAYS
     Route: 030
     Dates: start: 2006
  2. SANDOSTATIN LAR [Suspect]
     Dosage: UNK UKN, EVERY 28 DAYS
     Route: 030
     Dates: start: 2011
  3. PURAN T4 [Concomitant]
     Indication: HYPOTHYROIDISM
     Dosage: 150 MG, MONDAY TO SATURDAY
     Route: 048
     Dates: start: 2007
  4. PURAN T4 [Concomitant]
     Dosage: 175 UG, ON SUNDAY
     Route: 048
     Dates: start: 2007
  5. CAPTOPRIL [Concomitant]
     Indication: BLOOD PRESSURE INCREASED
     Dosage: 1 DF, UNK
     Route: 048
     Dates: start: 2007
  6. FUROSEMIDE [Concomitant]
     Indication: POLYURIA
     Dosage: 1 DF, UNK
     Route: 048
     Dates: start: 2007

REACTIONS (7)
  - Thyroid neoplasm [Recovering/Resolving]
  - Metastases to lung [Recovering/Resolving]
  - Blood growth hormone increased [Recovering/Resolving]
  - Pituitary tumour recurrent [Recovering/Resolving]
  - Arthralgia [Unknown]
  - Pain in extremity [Unknown]
  - Memory impairment [Unknown]
